FAERS Safety Report 5952771-0 (Version None)
Quarter: 2008Q4

REPORT INFORMATION
  Report Type: 
  Country: None (occurrence: None)
  Receive Date: 20081114
  Receipt Date: 20081106
  Transmission Date: 20090506
  Serious: No
  Sender: FDA-Public Use
  Company Number: US-B.I. PHARMACEUTICALS,INC./RIDGEFIELD-2008-BP-16878BP

PATIENT
  Sex: Male

DRUGS (2)
  1. SPIRIVA [Suspect]
     Dosage: 18MCG
     Route: 055
     Dates: start: 20081014
  2. ADVAIR DISKUS 100/50 [Concomitant]

REACTIONS (2)
  - NOCTURNAL DYSPNOEA [None]
  - THERAPEUTIC REACTION TIME DECREASED [None]
